FAERS Safety Report 8084041-1 (Version None)
Quarter: 2012Q1

REPORT INFORMATION
  Report Type: 
  Country: None (occurrence: None)
  Receive Date: 20120128
  Receipt Date: 20110128
  Transmission Date: 20120608
  Serious: Yes (Hospitalization)
  Sender: FDA-Public Use
  Company Number: US-ABBOTT-11P-163-0701457-00

PATIENT
  Sex: Male
  Weight: 104.42 kg

DRUGS (2)
  1. HUMIRA [Suspect]
     Dates: start: 20110128
  2. HUMIRA [Suspect]
     Indication: CROHN'S DISEASE
     Dates: start: 20070101, end: 20080101

REACTIONS (6)
  - CROHN'S DISEASE [None]
  - ARTHRALGIA [None]
  - OSTEONECROSIS [None]
  - COLITIS [None]
  - FEMUR FRACTURE [None]
  - LARGE INTESTINAL ULCER [None]
